FAERS Safety Report 6610324-5 (Version None)
Quarter: 2010Q1

REPORT INFORMATION
  Report Type: 
  Country: None (occurrence: None)
  Receive Date: 20100302
  Receipt Date: 20100224
  Transmission Date: 20100710
  Serious: Yes (Death, Hospitalization, Other)
  Sender: FDA-Public Use
  Company Number: PHHY2009MX56999

PATIENT
  Age: 83 Year
  Sex: Female

DRUGS (3)
  1. CO-DIOVAN [Suspect]
     Indication: HYPERTENSION
     Dosage: 1 TABLET (160/12.5 MG) PER DAY
     Route: 048
     Dates: start: 20080301
  2. CRESTOR [Concomitant]
     Dosage: 1 TABLET PER DAY
  3. ASPIRIN [Concomitant]
     Dosage: 1 TABLET PER DAY

REACTIONS (6)
  - DECREASED IMMUNE RESPONSIVENESS [None]
  - FUNGAL INFECTION [None]
  - HYPOTENSION [None]
  - MULTI-ORGAN FAILURE [None]
  - PNEUMONIA FUNGAL [None]
  - SEPTIC SHOCK [None]
